FAERS Safety Report 7807332-5 (Version None)
Quarter: 2011Q4

REPORT INFORMATION
  Report Type: 
  Country: None (occurrence: None)
  Receive Date: 20111011
  Receipt Date: 20111005
  Transmission Date: 20120403
  Serious: Yes (Other)
  Sender: FDA-Public Use
  Company Number: US-PFIZER INC-2011152952

PATIENT
  Sex: Female

DRUGS (13)
  1. ACETAMINOPHEN AND HYDROCODONE BITARTRATE [Concomitant]
     Indication: HEADACHE
     Dosage: 10/500MG
  2. ACETAMINOPHEN AND HYDROCODONE BITARTRATE [Concomitant]
     Indication: BACK PAIN
  3. ZOLOFT [Concomitant]
     Indication: DEPRESSION
     Dosage: 100 MG DAILY
     Dates: start: 20000101
  4. VALIUM [Concomitant]
     Indication: ANXIETY
     Dosage: 10 MG, 2X/DAY
  5. ACIPHEX [Concomitant]
     Indication: HIATUS HERNIA
     Dosage: 20 MG, UNK
     Dates: start: 20030101
  6. ALBUTEROL [Concomitant]
     Indication: ASTHMA
  7. ADVAIR DISKUS 100/50 [Concomitant]
     Indication: CHRONIC OBSTRUCTIVE PULMONARY DISEASE
     Dosage: UNK
     Dates: start: 20040101
  8. ADVAIR DISKUS 100/50 [Concomitant]
     Indication: ASTHMA
  9. CHANTIX [Suspect]
     Indication: SMOKING CESSATION THERAPY
     Dosage: UNK
     Dates: start: 20081101, end: 20090101
  10. CENTRUM SILVER [Concomitant]
     Dosage: UNK
     Dates: start: 19960101
  11. VALIUM [Concomitant]
     Indication: BLOOD PRESSURE
  12. ALBUTEROL [Concomitant]
     Indication: CHRONIC OBSTRUCTIVE PULMONARY DISEASE
     Dosage: UNK
     Dates: start: 20040101
  13. ACETAMINOPHEN AND HYDROCODONE BITARTRATE [Concomitant]
     Indication: FIBROMYALGIA

REACTIONS (10)
  - PHARMACOPHOBIA [None]
  - DEPRESSION [None]
  - AGGRESSION [None]
  - ANXIETY [None]
  - PHYSICAL ASSAULT [None]
  - HYPERSOMNIA [None]
  - DECREASED APPETITE [None]
  - SUICIDE ATTEMPT [None]
  - FEELING ABNORMAL [None]
  - NIGHTMARE [None]
